FAERS Safety Report 7513629-9 (Version None)
Quarter: 2011Q2

REPORT INFORMATION
  Report Type: 
  Country: None (occurrence: None)
  Receive Date: 20110531
  Receipt Date: 20110518
  Transmission Date: 20111010
  Serious: Yes (Hospitalization, Other)
  Sender: FDA-Public Use
  Company Number: US-BAYER-201041432NA

PATIENT
  Age: 22 Year
  Sex: Female
  Weight: 89 kg

DRUGS (3)
  1. DROSPIRENONE AND ETHINYL ESTRADIOL [Suspect]
     Indication: ACNE
  2. YAZ [Suspect]
     Indication: ACNE
     Dosage: UNK
  3. YASMIN [Suspect]
     Indication: ACNE

REACTIONS (2)
  - INJURY [None]
  - PULMONARY EMBOLISM [None]
